FAERS Safety Report 23171818 (Version 1)
Quarter: 2023Q4

REPORT INFORMATION
  Report Type: Report from Study
  Country: EG (occurrence: EG)
  Receive Date: 20231110
  Receipt Date: 20231110
  Transmission Date: 20240110
  Serious: Yes (Other)
  Sender: FDA-Public Use
  Company Number: EG-002147023-NVSC2023EG239161

PATIENT
  Age: 68 Year
  Sex: Male

DRUGS (6)
  1. ENTRESTO [Suspect]
     Active Substance: SACUBITRIL\VALSARTAN
     Indication: Left ventricular failure
     Dosage: 100 MG,1/2 TABLET, BID
     Route: 048
     Dates: start: 20230401, end: 20230501
  2. ENTRESTO [Suspect]
     Active Substance: SACUBITRIL\VALSARTAN
     Dosage: 100 MG,1 TAB, BID
     Route: 048
     Dates: start: 20231002
  3. CARVEDILOL [Concomitant]
     Active Substance: CARVEDILOL
     Indication: Cardiac failure
     Dosage: 6.25 MG, BID
     Route: 065
     Dates: start: 20231016
  4. JUSTECHOL [Concomitant]
     Indication: Cardiac failure
     Dosage: UNK, TAB AFTER DINNER
     Route: 065
     Dates: start: 20231016
  5. ASPIRIN [Concomitant]
     Active Substance: ASPIRIN
     Indication: Cardiac failure
     Dosage: UNK, TAB AFTER LUNCH
     Route: 065
     Dates: start: 20231016
  6. TORSEMIDE [Concomitant]
     Active Substance: TORSEMIDE
     Indication: Diuretic therapy
     Dosage: UNK, EVERY OTHER DAY OR EVERY 2 DAYS.
     Route: 065
     Dates: start: 20231016

REACTIONS (3)
  - Fatigue [Not Recovered/Not Resolved]
  - Dyspnoea [Not Recovered/Not Resolved]
  - Incorrect dose administered [Recovered/Resolved]

NARRATIVE: CASE EVENT DATE: 20230403
